FAERS Safety Report 11436757 (Version 1)
Quarter: 2015Q3

REPORT INFORMATION
  Report Type: Report from Study
  Country: BR (occurrence: BR)
  Receive Date: 20150831
  Receipt Date: 20150831
  Transmission Date: 20151125
  Serious: Yes (Other)
  Sender: FDA-Public Use
  Company Number: PHHY2015BR104868

PATIENT
  Sex: Male
  Weight: 98 kg

DRUGS (2)
  1. SANDOSTATIN [Suspect]
     Active Substance: OCTREOTIDE ACETATE
     Indication: PRODUCT USED FOR UNKNOWN INDICATION
     Dosage: UNK
     Route: 065
     Dates: start: 201405, end: 201412
  2. SANDOSTATIN [Suspect]
     Active Substance: OCTREOTIDE ACETATE
     Dosage: UNK
     Route: 065
     Dates: start: 20150514

REACTIONS (3)
  - Wrist fracture [Unknown]
  - Joint dislocation [Unknown]
  - Accident [Unknown]
